FAERS Safety Report 7950663-9 (Version None)
Quarter: 2011Q4

REPORT INFORMATION
  Report Type: 
  Country: None (occurrence: None)
  Receive Date: 20111201
  Receipt Date: 20111125
  Transmission Date: 20120403
  Serious: Yes (Other)
  Sender: FDA-Public Use
  Company Number: US-ACCORD-011459

PATIENT
  Age: 43 Year
  Sex: Female

DRUGS (6)
  1. DOCETAXEL [Suspect]
     Indication: BREAST CANCER
  2. DEXAMETHASONE [Concomitant]
     Dosage: ON DAY ZERO
     Route: 048
  3. DEXAMETHASONE [Concomitant]
     Dosage: ON DAY 1
     Route: 042
  4. CYCLOPHOSPHAMIDE [Suspect]
     Indication: BREAST CANCER
     Dosage: ON DAY 1
  5. PALONOSETRON [Concomitant]
     Dosage: ON DAY 1
     Route: 042
  6. APREPITANT [Concomitant]
     Dosage: 125 MG ON DAY 1 AND 80 MG ON DAY 2 AND 3
     Route: 048

REACTIONS (2)
  - DERMATITIS [None]
  - PHOTOSENSITIVITY REACTION [None]
